FAERS Safety Report 23574937 (Version 1)
Quarter: 2024Q1

REPORT INFORMATION
  Report Type: Spontaneous
  Country: US (occurrence: None)
  Receive Date: 20240227
  Receipt Date: 20240227
  Transmission Date: 20240410
  Serious: Yes (unspecified)
  Sender: FDA-Public Use
  Company Number: None

PATIENT
  Age: 78 Year
  Sex: Male
  Weight: 72.57 kg

DRUGS (7)
  1. BRENTUXIMAB [Suspect]
     Active Substance: BRENTUXIMAB
  2. DUVELISIB [Suspect]
     Active Substance: DUVELISIB
  3. FLOMAX [Concomitant]
     Active Substance: TAMSULOSIN HYDROCHLORIDE
  4. Timalol [Concomitant]
  5. LATANOPROST [Concomitant]
     Active Substance: LATANOPROST
  6. AMBIEN [Concomitant]
     Active Substance: ZOLPIDEM TARTRATE
  7. HERBAL NOS [Concomitant]
     Active Substance: HERBALS

REACTIONS (8)
  - Alopecia [None]
  - Neuropathy peripheral [None]
  - Cutaneous B-cell lymphoma [None]
  - Aphthous ulcer [None]
  - Oral candidiasis [None]
  - Erythema [None]
  - Hepatic enzyme abnormal [None]
  - Product complaint [None]

NARRATIVE: CASE EVENT DATE: 20230901
